FAERS Safety Report 9477816 (Version 2)
Quarter: 2013Q3

REPORT INFORMATION
  Report Type: Spontaneous
  Country: BR (occurrence: BR)
  Receive Date: 20130827
  Receipt Date: 20130827
  Transmission Date: 20140515
  Serious: Yes (Death)
  Sender: FDA-Public Use
  Company Number: BR-BRISTOL-MYERS SQUIBB COMPANY-17297649

PATIENT
  Age: 80 Year
  Sex: Male

DRUGS (1)
  1. ONGLYZA TABS 5 MG [Suspect]
     Dosage: CHANGED TO ONGLYZA TABS 2.5MG
     Dates: start: 20130107

REACTIONS (2)
  - Medication error [Unknown]
  - Death [Fatal]
